FAERS Safety Report 20837313 (Version 1)
Quarter: 2022Q2

REPORT INFORMATION
  Report Type: Other
  Country: ES (occurrence: None)
  Receive Date: 20220517
  Receipt Date: 20220517
  Transmission Date: 20220721
  Serious: Yes (Other)
  Sender: FDA-Public Use
  Company Number: ES-Saptalis Pharmaceuticals,LLC-000239

PATIENT
  Age: 22 Year
  Sex: Male

DRUGS (9)
  1. METFORMIN [Suspect]
     Active Substance: METFORMIN HYDROCHLORIDE
     Indication: Metabolic syndrome
     Dosage: 2000 MG/DAY
  2. SITAGLIPTIN [Suspect]
     Active Substance: SITAGLIPTIN
     Indication: Metabolic syndrome
     Dosage: 50 MG/DAY
  3. GLIMEPIRIDE [Suspect]
     Active Substance: GLIMEPIRIDE
     Indication: Metabolic syndrome
     Dosage: 4 MG/DAY
  4. PIOGLITAZONE [Suspect]
     Active Substance: PIOGLITAZONE
     Indication: Metabolic syndrome
     Dosage: 15 MG/DAY
  5. INSULIN GLARGINE [Suspect]
     Active Substance: INSULIN GLARGINE
     Indication: Metabolic syndrome
     Dosage: 23% BASAL AND 77% BOLUS, TOTAL INSULIN DOSE 2.23 IU/KG/DAY
     Route: 040
  6. INSULIN LISPRO [Suspect]
     Active Substance: INSULIN LISPRO
     Indication: Metabolic syndrome
     Dosage: 23% BASAL AND 77% BOLUS, TOTAL INSULIN DOSE 2.23 IU/KG/ DAY
     Route: 040
  7. METFORMIN [Suspect]
     Active Substance: METFORMIN HYDROCHLORIDE
     Indication: Metabolic syndrome
     Dosage: 1275 MG/DAY
  8. METFORMIN [Suspect]
     Active Substance: METFORMIN HYDROCHLORIDE
     Indication: Metabolic syndrome
     Dosage: 850 MG/DAY
  9. SITAGLIPTIN [Suspect]
     Active Substance: SITAGLIPTIN
     Indication: Metabolic syndrome
     Dosage: 100 MG/DAY

REACTIONS (4)
  - Blood glucose abnormal [Recovered/Resolved]
  - Disease progression [Recovered/Resolved]
  - Glycosylated haemoglobin increased [Recovered/Resolved]
  - Drug ineffective [Recovered/Resolved]
